FAERS Safety Report 23223925 (Version 1)
Quarter: 2023Q4

REPORT INFORMATION
  Report Type: Spontaneous
  Country: US (occurrence: US)
  Receive Date: 20231124
  Receipt Date: 20231124
  Transmission Date: 20240110
  Serious: No
  Sender: FDA-Public Use
  Company Number: US-GLAXOSMITHKLINE-USCH2023AMR057066

PATIENT
  Sex: Female

DRUGS (2)
  1. ADVIL [Suspect]
     Active Substance: IBUPROFEN
     Indication: Pain
     Dosage: 600 MG (TAKE 3 TABLETS)
     Route: 048
     Dates: start: 20231106
  2. MOTRIN [Suspect]
     Active Substance: IBUPROFEN
     Indication: Pain
     Dosage: 600 MG (TAKE 3 TABLETS)
     Route: 048
     Dates: start: 20231106

REACTIONS (1)
  - Contraindicated product administered [Unknown]
